FAERS Safety Report 9215574 (Version 3)
Quarter: 2022Q1

REPORT INFORMATION
  Report Type: Report from Study
  Country: CA (occurrence: CA)
  Receive Date: 20130408
  Receipt Date: 20220113
  Transmission Date: 20220424
  Serious: Yes (Hospitalization)
  Sender: FDA-Public Use
  Company Number: CA-AMGEN-CANSP2013023744

PATIENT
  Age: 67 Year
  Sex: Male

DRUGS (9)
  1. ENBREL [Suspect]
     Active Substance: ETANERCEPT
     Indication: Rheumatoid arthritis
     Dosage: 50 MG, QWK
     Route: 058
     Dates: start: 201002, end: 2013
  2. METHOTREXATE [Concomitant]
     Active Substance: METHOTREXATE
     Dosage: 20 MG, QWK
     Route: 058
     Dates: start: 1999
  3. FOLIC ACID [Concomitant]
     Active Substance: FOLIC ACID
     Dosage: UNK
  4. VITAMIN B12 [Concomitant]
     Active Substance: CYANOCOBALAMIN
     Dosage: UNK
  5. BISOPROLOL FUMARATE [Concomitant]
     Active Substance: BISOPROLOL FUMARATE
     Dosage: 2.5 UNK, QD
  6. MAVIK [Concomitant]
     Active Substance: TRANDOLAPRIL
     Dosage: 1 UNK, QD
  7. ASPIRIN [Concomitant]
     Active Substance: ASPIRIN
     Dosage: 80 UNK, QD
  8. TICAGRELOR [Concomitant]
     Active Substance: TICAGRELOR
     Dosage: 90 TWICE DAILY
  9. LIPITOR [Concomitant]
     Active Substance: ATORVASTATIN CALCIUM
     Dosage: 80 UNK, QD

REACTIONS (1)
  - Acute myocardial infarction [Recovered/Resolved]

NARRATIVE: CASE EVENT DATE: 20130306
